FAERS Safety Report 19358003 (Version 1)
Quarter: 2021Q2

REPORT INFORMATION
  Report Type: Spontaneous
  Country: DK (occurrence: DK)
  Receive Date: 20210601
  Receipt Date: 20210601
  Transmission Date: 20210717
  Serious: Yes (Hospitalization)
  Sender: FDA-Public Use
  Company Number: DK-LUPIN PHARMACEUTICALS INC.-2021-08226

PATIENT
  Age: 93 Year
  Sex: Female

DRUGS (2)
  1. MORPHINE [Suspect]
     Active Substance: MORPHINE
     Indication: BACK PAIN
     Dosage: 5 MILLIGRAM, BID
     Route: 065
  2. FENTANYL. [Suspect]
     Active Substance: FENTANYL
     Indication: BACK PAIN
     Dosage: UNK 25 AUG/HOUR
     Route: 062

REACTIONS (3)
  - Fall [Recovered/Resolved]
  - Product prescribing error [Unknown]
  - Accidental overdose [Unknown]
